FAERS Safety Report 6583023-6 (Version None)
Quarter: 2010Q1

REPORT INFORMATION
  Report Type: 
  Country: None (occurrence: None)
  Receive Date: 20100212
  Receipt Date: 20100212
  Transmission Date: 20100710
  Serious: Yes (Other)
  Sender: FDA-Public Use
  Company Number: None

PATIENT
  Age: 65 Year
  Sex: Male
  Weight: 81.6 kg

DRUGS (1)
  1. TRAMADOL HCL [Suspect]
     Indication: PAIN
     Dosage: 50 MG OTHER PO
     Route: 048
     Dates: start: 20090507, end: 20090518

REACTIONS (5)
  - DIZZINESS [None]
  - HALLUCINATION [None]
  - NAUSEA [None]
  - SEDATION [None]
  - VOMITING [None]
